FAERS Safety Report 4935011-0 (Version None)
Quarter: 2006Q1

REPORT INFORMATION
  Report Type: 
  Country: None (occurrence: None)
  Receive Date: 20060306
  Receipt Date: 20060306
  Transmission Date: 20060701
  Serious: Yes (Other)
  Sender: FDA-Public Use
  Company Number: None

PATIENT
  Age: 50 Year
  Sex: Female
  Weight: 54.4316 kg

DRUGS (2)
  1. OXYCONTIN [Suspect]
     Indication: FIBROMYALGIA
     Dosage: 80MG TID
     Dates: start: 20051201
  2. OXYCONTIN [Suspect]
     Indication: NEURALGIA
     Dosage: 80MG TID
     Dates: start: 20051201

REACTIONS (3)
  - PRURITUS [None]
  - RASH ERYTHEMATOUS [None]
  - URTICARIA [None]
